FAERS Safety Report 6102755-7 (Version None)
Quarter: 2009Q1

REPORT INFORMATION
  Report Type: 
  Country: None (occurrence: None)
  Receive Date: 20090304
  Receipt Date: 20090303
  Transmission Date: 20090719
  Serious: No
  Sender: FDA-Public Use
  Company Number: US-B.I. PHARMACEUTICALS,INC./RIDGEFIELD-2008-BP-16484BP

PATIENT
  Sex: Female

DRUGS (18)
  1. SPIRIVA [Suspect]
     Indication: DYSPNOEA
     Dosage: 18MCG
     Route: 055
     Dates: start: 20070101
  2. BENICAR [Concomitant]
     Dosage: 20MG
  3. TOPROL-XL [Concomitant]
     Dosage: 25MG
  4. LEVOTHYROXINE SODIUM [Concomitant]
     Dosage: 50MCG
  5. FUROSEMIDE [Concomitant]
     Dosage: 80MG
  6. NEXIUM [Concomitant]
     Dosage: 40MG
  7. WARFARIN SODIUM [Concomitant]
     Dosage: 2.5MG
  8. KLOR-CON [Concomitant]
  9. TRAZODONE HCL [Concomitant]
     Dosage: 50MG
  10. REMERON [Concomitant]
     Dosage: 7.5MG
  11. PREDNISONE [Concomitant]
     Dosage: 5MG
  12. LORTAB [Concomitant]
  13. ALPRAZOLAM [Concomitant]
     Dosage: 1MG
  14. TUMS [Concomitant]
  15. TYLENOL (CAPLET) [Concomitant]
  16. VITAMIN D [Concomitant]
     Dosage: 800U
  17. MIRALAX [Concomitant]
  18. ARTHRITIS MEDICATION [Concomitant]
     Indication: RHEUMATOID ARTHRITIS

REACTIONS (2)
  - COUGH [None]
  - OROPHARYNGEAL PAIN [None]
